FAERS Safety Report 20935190 (Version 4)
Quarter: 2025Q1

REPORT INFORMATION
  Report Type: Report from Study
  Country: US (occurrence: US)
  Receive Date: 20220608
  Receipt Date: 20250114
  Transmission Date: 20250408
  Serious: Yes (Other)
  Sender: GLAXOSMITHKLINE
  Company Number: US-GSKCCFUS-Case-01394541_AE-80397

PATIENT
  Age: 78 Year
  Sex: Female

DRUGS (2)
  1. MEPOLIZUMAB [Suspect]
     Active Substance: MEPOLIZUMAB
     Indication: Asthma
     Dosage: 100 MG/ML, Q4W
  2. MEPOLIZUMAB [Suspect]
     Active Substance: MEPOLIZUMAB

REACTIONS (11)
  - Dementia Alzheimer^s type [Not Recovered/Not Resolved]
  - Nervousness [Unknown]
  - Mood altered [Unknown]
  - Exposure via skin contact [Unknown]
  - Confusional state [Not Recovered/Not Resolved]
  - Feeling cold [Unknown]
  - Illness [Unknown]
  - Device use error [Unknown]
  - Accidental exposure to product [Unknown]
  - Product dose omission issue [Unknown]
  - Incorrect dose administered [Unknown]

NARRATIVE: CASE EVENT DATE: 20220531
